FAERS Safety Report 7241425-9 (Version None)
Quarter: 2011Q1

REPORT INFORMATION
  Report Type: 
  Country: None (occurrence: None)
  Receive Date: 20110124
  Receipt Date: 20110110
  Transmission Date: 20110831
  Serious: Yes (Hospitalization)
  Sender: FDA-Public Use
  Company Number: PHHY2011TR03141

PATIENT
  Age: 74 Year
  Sex: Male

DRUGS (4)
  1. WARFARIN [Suspect]
     Indication: PROPHYLAXIS
  2. RED BLOOD CELLS [Concomitant]
  3. HEPARIN [Concomitant]
     Dosage: 0.6 MG, UNK
  4. WARFARIN [Suspect]

REACTIONS (7)
  - FALL [None]
  - MUSCLE HAEMORRHAGE [None]
  - TENDERNESS [None]
  - HYPOREFLEXIA [None]
  - MUSCULOSKELETAL DISCOMFORT [None]
  - MUSCULAR WEAKNESS [None]
  - HAEMOGLOBIN DECREASED [None]
